FAERS Safety Report 6574901-2 (Version None)
Quarter: 2010Q1

REPORT INFORMATION
  Report Type: 
  Country: None (occurrence: None)
  Receive Date: 20100209
  Receipt Date: 20100127
  Transmission Date: 20100710
  Serious: Yes (Hospitalization, Other)
  Sender: FDA-Public Use
  Company Number: PHHY2009GB48980

PATIENT
  Sex: Female

DRUGS (2)
  1. CLOZARIL [Suspect]
     Indication: SCHIZOPHRENIA
     Dosage: 300 MG, UNK
     Route: 048
     Dates: start: 20090805, end: 20091106
  2. VENLAFAXINE [Concomitant]
     Indication: DEPRESSED MOOD
     Dosage: 300 MG, UNK
     Route: 048

REACTIONS (11)
  - COUGH [None]
  - DRUG INEFFECTIVE [None]
  - INFECTION [None]
  - INFLUENZA [None]
  - INSOMNIA [None]
  - LUNG INFECTION [None]
  - MALAISE [None]
  - NEUTROPHIL COUNT DECREASED [None]
  - NIGHT SWEATS [None]
  - URINARY INCONTINENCE [None]
  - WHITE BLOOD CELL COUNT DECREASED [None]
